FAERS Safety Report 9304319 (Version 2)
Quarter: 2013Q2

REPORT INFORMATION
  Report Type: Spontaneous
  Country: JP (occurrence: JP)
  Receive Date: 20130522
  Receipt Date: 20130612
  Transmission Date: 20140414
  Serious: Yes (Other)
  Sender: FDA-Public Use
  Company Number: JP-ALLERGAN-1307437US

PATIENT
  Age: 83 Year
  Sex: Female

DRUGS (6)
  1. ALESION TABLET [Suspect]
     Indication: GENERALISED ERYTHEMA
     Dosage: 20 MG, QD
     Route: 048
     Dates: start: 20130510, end: 20130512
  2. AMINOLEBAN EN [Concomitant]
     Indication: HEPATIC FAILURE
  3. GASMOTIN [Concomitant]
     Indication: PRODUCT USED FOR UNKNOWN INDICATION
  4. DAIKENCHUTO [Concomitant]
     Indication: PRODUCT USED FOR UNKNOWN INDICATION
  5. MONILAC [Concomitant]
     Indication: PRODUCT USED FOR UNKNOWN INDICATION
  6. LULICON [Concomitant]
     Indication: PRODUCT USED FOR UNKNOWN INDICATION

REACTIONS (1)
  - Platelet count decreased [Recovered/Resolved]
